FAERS Safety Report 7830050-4 (Version None)
Quarter: 2011Q4

REPORT INFORMATION
  Report Type: 
  Country: None (occurrence: None)
  Receive Date: 20111021
  Receipt Date: 20111014
  Transmission Date: 20120403
  Serious: Yes (Other)
  Sender: FDA-Public Use
  Company Number: GB-ASTELLAS-2011US005945

PATIENT
  Sex: Female

DRUGS (1)
  1. TARCEVA [Suspect]
     Indication: LUNG NEOPLASM MALIGNANT
     Dosage: 100 MG, UID/QD
     Route: 048
     Dates: start: 20110321

REACTIONS (5)
  - MADAROSIS [None]
  - INCORRECT DOSE ADMINISTERED [None]
  - HAIR GROWTH ABNORMAL [None]
  - METAMORPHOPSIA [None]
  - FEELING ABNORMAL [None]
